FAERS Safety Report 25012055 (Version 3)
Quarter: 2025Q1

REPORT INFORMATION
  Report Type: Spontaneous
  Country: JP (occurrence: JP)
  Receive Date: 20250226
  Receipt Date: 20250326
  Transmission Date: 20250409
  Serious: Yes (Death, Other)
  Sender: GILEAD
  Company Number: JP-GILEAD-2025-0703402

PATIENT
  Age: 77 Year
  Sex: Male

DRUGS (7)
  1. VEMLIDY [Suspect]
     Active Substance: TENOFOVIR ALAFENAMIDE FUMARATE
     Indication: Hepatitis B
     Route: 065
     Dates: start: 20241122
  2. PREDONINE [Concomitant]
     Active Substance: PREDNISOLONE
  3. LANSOPRAZOLE [Concomitant]
     Active Substance: LANSOPRAZOLE
  4. MACTASE [DEHYDROCHOLIC ACID;DIASTASE;MOLSIN;OX BILE EXTRACT;PANCREATIN [Concomitant]
  5. SILODOSIN [Concomitant]
     Active Substance: SILODOSIN
  6. AMLODIPINE BESYLATE [Concomitant]
     Active Substance: AMLODIPINE BESYLATE
  7. NEO MINOPHAGEN C [CYSTEINE HYDROCHLORIDE;GLYCINE;GLYCYRRHIZIC ACID, AM [Concomitant]

REACTIONS (1)
  - Hepatic failure [Fatal]
